FAERS Safety Report 5210368-4 (Version None)
Quarter: 2007Q1

REPORT INFORMATION
  Report Type: 
  Country: None (occurrence: None)
  Receive Date: 20070117
  Receipt Date: 20070109
  Transmission Date: 20070707
  Serious: Yes (Hospitalization, Disabling, Other)
  Sender: FDA-Public Use
  Company Number: US-BRISTOL-MYERS SQUIBB COMPANY-13434147

PATIENT
  Sex: Male
  Weight: 118 kg

DRUGS (4)
  1. TEQUIN [Suspect]
     Indication: SINUSITIS
     Dosage: THERAPY DATE: ON OR ABOUT 06-DEC-2003
     Dates: start: 20031201
  2. HYZAAR [Concomitant]
  3. NORVASC [Concomitant]
  4. COUMADIN [Concomitant]

REACTIONS (15)
  - ACUTE RESPIRATORY DISTRESS SYNDROME [None]
  - BLOOD GLUCOSE INCREASED [None]
  - CATHETER RELATED INFECTION [None]
  - DECUBITUS ULCER [None]
  - DEEP VEIN THROMBOSIS [None]
  - DIABETIC HYPEROSMOLAR COMA [None]
  - EMPYEMA [None]
  - KETOACIDOSIS [None]
  - METABOLIC ACIDOSIS [None]
  - PENILE HAEMORRHAGE [None]
  - PNEUMOTHORAX [None]
  - RENAL FAILURE ACUTE [None]
  - RHABDOMYOLYSIS [None]
  - SEPSIS [None]
  - SINUS TACHYCARDIA [None]
